FAERS Safety Report 24246435 (Version 1)
Quarter: 2024Q3

REPORT INFORMATION
  Report Type: Spontaneous
  Country: CN (occurrence: CN)
  Receive Date: 20240825
  Receipt Date: 20240825
  Transmission Date: 20241017
  Serious: Yes (Hospitalization, Other)
  Sender: BAXTER
  Company Number: None

PATIENT
  Age: 43 Year
  Sex: Female
  Weight: 64 kg

DRUGS (2)
  1. CYCLOPHOSPHAMIDE [Suspect]
     Active Substance: CYCLOPHOSPHAMIDE
     Indication: Breast cancer female
     Dosage: 200 MG, ONE TIME IN ONE DAY, (SECOND LAST CHEMOTHERAPY SESSION), ANTI-CANCER TREATMENT
     Route: 041
     Dates: start: 20240805, end: 20240805
  2. EPIRUBICIN HYDROCHLORIDE [Suspect]
     Active Substance: EPIRUBICIN HYDROCHLORIDE
     Indication: Breast cancer female
     Dosage: 100 MG, ONE TIME IN ONE DAY, (SECOND LAST CHEMOTHERAPY SESSION), ANTI-CANCER TREATMENT
     Route: 041
     Dates: start: 20240805, end: 20240805

REACTIONS (7)
  - Breast cancer female [Unknown]
  - Condition aggravated [Unknown]
  - Agranulocytosis [Recovered/Resolved]
  - Neutropenia [Recovering/Resolving]
  - Pneumonia [Recovering/Resolving]
  - Dyspnoea [Recovering/Resolving]
  - Cough [Recovering/Resolving]

NARRATIVE: CASE EVENT DATE: 20240810
